FAERS Safety Report 11121010 (Version 2)
Quarter: 2015Q2

REPORT INFORMATION
  Report Type: Spontaneous
  Country: US (occurrence: None)
  Receive Date: 20150515
  Receipt Date: 20150521
  Transmission Date: 20150821
  Serious: Yes (Other)
  Sender: FDA-Public Use
  Company Number: AMAG201500361

PATIENT
  Age: 43 Year
  Sex: Male
  Weight: 92.5 kg

DRUGS (1)
  1. FERAHEME [Suspect]
     Active Substance: FERUMOXYTOL NON-STOICHIOMETRIC MAGNETITE
     Route: 042
     Dates: start: 20150416, end: 20150416

REACTIONS (4)
  - Dyspnoea [None]
  - Back pain [None]
  - Muscle contractions involuntary [None]
  - Chest discomfort [None]

NARRATIVE: CASE EVENT DATE: 20150416
